FAERS Safety Report 6785287-2 (Version None)
Quarter: 2010Q2

REPORT INFORMATION
  Report Type: 
  Country: None (occurrence: None)
  Receive Date: 20100623
  Receipt Date: 20100614
  Transmission Date: 20101027
  Serious: Yes (Hospitalization)
  Sender: FDA-Public Use
  Company Number: US-BIOGENIDEC-2009BI036120

PATIENT
  Age: 60 Year
  Sex: Female

DRUGS (2)
  1. TYSABRI [Suspect]
     Indication: MULTIPLE SCLEROSIS
     Route: 042
     Dates: start: 20070320, end: 20080903
  2. TYSABRI [Suspect]
     Route: 042
     Dates: start: 20091006

REACTIONS (5)
  - CONCUSSION [None]
  - DEPRESSION [None]
  - DIZZINESS [None]
  - FALL [None]
  - WRIST FRACTURE [None]
